FAERS Safety Report 7989447-4 (Version None)
Quarter: 2011Q4

REPORT INFORMATION
  Report Type: 
  Country: None (occurrence: None)
  Receive Date: 20111219
  Receipt Date: 20111214
  Transmission Date: 20120403
  Serious: Yes (Death)
  Sender: FDA-Public Use
  Company Number: US-BRACCO-007268

PATIENT
  Age: 31 Year
  Sex: Female

DRUGS (4)
  1. IOPAMIDOL [Suspect]
     Indication: COMPUTERISED TOMOGRAM
     Dosage: LOT # 1I51237 EXP. DATE 30-SEP-2014 OR AD1P572A EXP. DATE 31-JUL-2014
     Route: 042
     Dates: start: 20111214, end: 20111214
  2. OTHER RESPIRATORY SYSTEM PRODUCTS [Concomitant]
  3. IOPAMIDOL [Suspect]
     Indication: ABDOMINAL PAIN
     Dosage: LOT # 1I51237 EXP. DATE 30-SEP-2014 OR AD1P572A EXP. DATE 31-JUL-2014
     Route: 042
     Dates: start: 20111214, end: 20111214
  4. ADVAIR DISKUS 100/50 [Concomitant]

REACTIONS (1)
  - ANAPHYLACTIC SHOCK [None]
